FAERS Safety Report 5102549-5 (Version None)
Quarter: 2006Q3

REPORT INFORMATION
  Report Type: 
  Country: None (occurrence: None)
  Receive Date: 20060912
  Receipt Date: 20060615
  Transmission Date: 20061208
  Serious: Yes (Hospitalization)
  Sender: FDA-Public Use
  Company Number: US-GLAXOSMITHKLINE-A0609158A

PATIENT
  Age: 63 Year
  Sex: Female

DRUGS (13)
  1. DEXEDRINE [Suspect]
     Dosage: 5MG SEE DOSAGE TEXT
     Route: 048
     Dates: start: 19940101
  2. DEXEDRINE [Suspect]
     Dosage: 10MG UNKNOWN
     Route: 048
     Dates: start: 19980101
  3. PAXIL [Suspect]
     Dosage: 20MG UNKNOWN
     Route: 048
  4. WELLBUTRIN [Suspect]
     Indication: DEPRESSION
     Route: 048
  5. SINEQUAN [Concomitant]
  6. CYMBALTA [Concomitant]
  7. PREDNISONE TAB [Concomitant]
  8. MINOCIN [Concomitant]
  9. CORTEF [Concomitant]
  10. ESTRACE [Concomitant]
  11. KLONOPIN [Concomitant]
  12. ULTRACET [Concomitant]
  13. VITAMINS [Concomitant]

REACTIONS (8)
  - CEREBROVASCULAR ACCIDENT [None]
  - DRUG INEFFECTIVE [None]
  - FATIGUE [None]
  - FEELING ABNORMAL [None]
  - INFLAMMATION [None]
  - RHEUMATOID ARTHRITIS [None]
  - THERAPEUTIC RESPONSE DECREASED [None]
  - WEIGHT INCREASED [None]
